FAERS Safety Report 4322395-X (Version None)
Quarter: 2004Q1

REPORT INFORMATION
  Report Type: 
  Country: None (occurrence: None)
  Receive Date: 20040323
  Receipt Date: 20040323
  Transmission Date: 20041129
  Serious: Yes (Hospitalization, Other)
  Sender: FDA-Public Use
  Company Number: None

PATIENT
  Age: 25 Year
  Sex: Female
  Weight: 52.1637 kg

DRUGS (9)
  1. PAXIL [Suspect]
     Indication: ANXIETY DISORDER
     Dosage: ONCE DAY ORAL
     Route: 048
     Dates: start: 20020531, end: 20030101
  2. PAXIL [Suspect]
     Indication: DEPRESSION
     Dosage: ONCE DAY ORAL
     Route: 048
     Dates: start: 20020531, end: 20030101
  3. PAXIL [Suspect]
     Indication: PANIC ATTACK
     Dosage: ONCE DAY ORAL
     Route: 048
     Dates: start: 20020531, end: 20030101
  4. PAXIL [Suspect]
     Indication: PANIC DISORDER
     Dosage: ONCE DAY ORAL
     Route: 048
     Dates: start: 20020531, end: 20030101
  5. PAXIL CR [Suspect]
     Indication: ANXIETY DISORDER
     Dosage: ONCE DAY ORAL
     Route: 048
     Dates: start: 20040101, end: 20040322
  6. PAXIL CR [Suspect]
     Indication: DEPRESSION
     Dosage: ONCE DAY ORAL
     Route: 048
     Dates: start: 20040101, end: 20040322
  7. PAXIL CR [Suspect]
     Indication: PANIC ATTACK
     Dosage: ONCE DAY ORAL
     Route: 048
     Dates: start: 20040101, end: 20040322
  8. PAXIL CR [Suspect]
     Indication: PANIC DISORDER
     Dosage: ONCE DAY ORAL
     Route: 048
     Dates: start: 20040101, end: 20040322
  9. KLONOPIN [Concomitant]

REACTIONS (11)
  - ARRHYTHMIA [None]
  - CARDIAC DISORDER [None]
  - DRUG EFFECT DECREASED [None]
  - DRUG WITHDRAWAL SYNDROME [None]
  - GASTROINTESTINAL DISORDER [None]
  - IMPAIRED WORK ABILITY [None]
  - LETHARGY [None]
  - MOOD SWINGS [None]
  - OVERDOSE [None]
  - SUICIDAL IDEATION [None]
  - SYNCOPE [None]
